FAERS Safety Report 13868693 (Version 1)
Quarter: 2017Q3

REPORT INFORMATION
  Report Type: Spontaneous
  Country: US (occurrence: US)
  Receive Date: 20170815
  Receipt Date: 20170815
  Transmission Date: 20171127
  Serious: No
  Sender: FDA-Public Use
  Company Number: US-PFIZER INC-2017348952

PATIENT
  Age: 59 Year
  Sex: Female

DRUGS (4)
  1. FLUCONAZOLE. [Suspect]
     Active Substance: FLUCONAZOLE
     Indication: BACTERIAL VULVOVAGINITIS
     Dosage: 150 MG, CYCLIC (ONE DOSE ON DAY 1, ANOTHER DOSE 3 DAYS LATER, THEN 1 TABLET PER WEEK IN 4 WEEKS)
     Route: 048
  2. CLINDAMYCIN PHOSPHATE. [Concomitant]
     Active Substance: CLINDAMYCIN PHOSPHATE
     Indication: BACTERIAL VULVOVAGINITIS
     Dosage: UNK, DAILY (AT BEDTIME FOR 7 DAYS)
     Route: 067
     Dates: start: 20170804
  3. TIROSINT [Concomitant]
     Active Substance: LEVOTHYROXINE SODIUM
     Indication: HYPOTHYROIDISM
     Dosage: UNK
     Dates: start: 2013
  4. TYLENOL [Suspect]
     Active Substance: ACETAMINOPHEN
     Dosage: UNK

REACTIONS (2)
  - Rash [Unknown]
  - Product use in unapproved indication [Not Recovered/Not Resolved]
